FAERS Safety Report 7900385-5 (Version None)
Quarter: 2011Q4

REPORT INFORMATION
  Report Type: 
  Country: None (occurrence: None)
  Receive Date: 20111108
  Receipt Date: 20111103
  Transmission Date: 20120403
  Serious: No
  Sender: FDA-Public Use
  Company Number: US-PFIZER INC-2011269458

PATIENT
  Sex: Female
  Weight: 77.551 kg

DRUGS (2)
  1. REVATIO [Suspect]
     Dosage: UNK
  2. TREPROSTINIL SODIUM [Suspect]
     Indication: PULMONARY ARTERIAL HYPERTENSION
     Dosage: 18 UG, 4X/DAY
     Dates: start: 20111019

REACTIONS (1)
  - HEADACHE [None]
